FAERS Safety Report 7065458-0 (Version None)
Quarter: 2010Q4

REPORT INFORMATION
  Report Type: 
  Country: None (occurrence: None)
  Receive Date: 20101027
  Receipt Date: 20101022
  Transmission Date: 20110411
  Serious: Yes (Other)
  Sender: FDA-Public Use
  Company Number: US-PFIZER INC-2010134757

PATIENT
  Sex: Male
  Weight: 77.098 kg

DRUGS (3)
  1. CHANTIX [Suspect]
     Indication: SMOKING CESSATION THERAPY
     Dosage: UNK MG, UNK
     Route: 048
     Dates: start: 20101001, end: 20101019
  2. PERCOCET [Concomitant]
     Indication: PAIN
     Dosage: 325 MG, AS NEEDED
     Route: 048
  3. MS CONTIN [Concomitant]
     Dosage: UNK

REACTIONS (3)
  - AGGRESSION [None]
  - ANGER [None]
  - IRRITABILITY [None]
